FAERS Safety Report 10752253 (Version 1)
Quarter: 2015Q1

REPORT INFORMATION
  Report Type: Spontaneous
  Country: US (occurrence: US)
  Receive Date: 20150130
  Receipt Date: 20150130
  Transmission Date: 20150721
  Serious: Yes (Hospitalization, Other)
  Sender: FDA-Public Use
  Company Number: US-ELI_LILLY_AND_COMPANY-US201501007535

PATIENT
  Age: 71 Year
  Sex: Female

DRUGS (2)
  1. HUMALOG [Suspect]
     Active Substance: INSULIN LISPRO
     Indication: TYPE 2 DIABETES MELLITUS
     Dosage: 31 U, QD
     Route: 065
     Dates: start: 2006
  2. LANTUS [Concomitant]
     Active Substance: INSULIN GLARGINE

REACTIONS (13)
  - Pulmonary oedema [Unknown]
  - Angiopathy [Unknown]
  - Oedema [Recovering/Resolving]
  - Cardiac failure [Unknown]
  - Memory impairment [Unknown]
  - Injection site pain [Unknown]
  - Renal failure [Unknown]
  - Pain [Unknown]
  - Swelling [Unknown]
  - Cerebrovascular accident [Recovered/Resolved with Sequelae]
  - Drug intolerance [Unknown]
  - Blood pressure increased [Recovering/Resolving]
  - Drug hypersensitivity [Unknown]

NARRATIVE: CASE EVENT DATE: 201410
